FAERS Safety Report 8284852-3 (Version None)
Quarter: 2012Q2

REPORT INFORMATION
  Report Type: 
  Country: None (occurrence: None)
  Receive Date: 20120413
  Receipt Date: 20110316
  Transmission Date: 20120825
  Serious: No
  Sender: FDA-Public Use
  Company Number: US-ASTRAZENECA-2011SE14965

PATIENT
  Age: 41 Year
  Sex: Female
  Weight: 65.8 kg

DRUGS (3)
  1. NEXIUM [Suspect]
     Indication: GASTROOESOPHAGEAL REFLUX DISEASE
     Route: 048
     Dates: start: 20050101
  2. PRILOSEC [Suspect]
     Indication: GASTROOESOPHAGEAL REFLUX DISEASE
     Route: 048
     Dates: start: 20090101, end: 20090101
  3. ALPRAZOLAM [Concomitant]
     Indication: ANXIETY

REACTIONS (8)
  - DIZZINESS [None]
  - VOMITING [None]
  - ANXIETY [None]
  - HEADACHE [None]
  - SYNCOPE [None]
  - NAUSEA [None]
  - EAR PAIN [None]
  - DIARRHOEA [None]
